FAERS Safety Report 4974320-6 (Version None)
Quarter: 2006Q2

REPORT INFORMATION
  Report Type: 
  Country: None (occurrence: None)
  Receive Date: 20060417
  Receipt Date: 20051207
  Transmission Date: 20061013
  Serious: Yes (Hospitalization, Other)
  Sender: FDA-Public Use
  Company Number: US-MERCK-0512USA01049

PATIENT
  Age: 43 Year
  Sex: Female
  Weight: 86 kg

DRUGS (13)
  1. VIOXX [Suspect]
     Indication: RHEUMATOID ARTHRITIS
     Route: 048
     Dates: start: 20010614, end: 20021030
  2. VIOXX [Suspect]
     Route: 048
     Dates: start: 20021031, end: 20030725
  3. VIOXX [Suspect]
     Indication: PAIN IN EXTREMITY
     Route: 048
     Dates: start: 20010614, end: 20021030
  4. VIOXX [Suspect]
     Route: 048
     Dates: start: 20021031, end: 20030725
  5. VICODIN [Concomitant]
     Route: 065
  6. ENBREL [Concomitant]
     Route: 065
  7. ZOLOFT [Concomitant]
     Route: 065
  8. TRAZODONE HYDROCHLORIDE [Concomitant]
     Route: 065
  9. CALCIUM CARBONATE [Concomitant]
     Route: 065
  10. PREMARIN [Concomitant]
     Route: 065
  11. CELEBREX [Concomitant]
     Route: 065
  12. FLEXERIL [Concomitant]
     Route: 065
  13. ACETAMINOPHEN AND HYDROCODONE BITARTRATE [Concomitant]
     Route: 065

REACTIONS (22)
  - ABDOMINAL PAIN [None]
  - ANGINA UNSTABLE [None]
  - ARTERIOSCLEROSIS [None]
  - ARTERIOSCLEROSIS CORONARY ARTERY [None]
  - BLOOD TRIGLYCERIDES INCREASED [None]
  - CHEST PAIN [None]
  - CHRONIC OBSTRUCTIVE PULMONARY DISEASE [None]
  - CORONARY ARTERY DISEASE [None]
  - CORONARY ARTERY OCCLUSION [None]
  - DEPRESSION [None]
  - DIVERTICULITIS [None]
  - DYSLIPIDAEMIA [None]
  - FIBROMYALGIA [None]
  - GASTROOESOPHAGEAL REFLUX DISEASE [None]
  - HAEMORRHOIDAL HAEMORRHAGE [None]
  - HAEMORRHOIDS [None]
  - HEPATIC STEATOSIS [None]
  - INTERMITTENT CLAUDICATION [None]
  - MUSCULOSKELETAL CHEST PAIN [None]
  - MYOCARDIAL INFARCTION [None]
  - NON-CARDIAC CHEST PAIN [None]
  - RECTAL HAEMORRHAGE [None]
